FAERS Safety Report 4486431-2 (Version None)
Quarter: 2004Q4

REPORT INFORMATION
  Report Type: 
  Country: None (occurrence: None)
  Receive Date: 20041026
  Receipt Date: 20041026
  Transmission Date: 20050328
  Serious: Yes (Hospitalization)
  Sender: FDA-Public Use
  Company Number: None

PATIENT
  Age: 74 Year
  Sex: Male

DRUGS (12)
  1. DIGOXIN [Suspect]
     Indication: CARDIAC FAILURE
     Dosage: 0.125 MG DAILY ORAL
     Route: 048
  2. NITROGLYCERIN [Concomitant]
  3. POTASSIUM [Concomitant]
  4. CARVEDILOL [Concomitant]
  5. IMDUR [Concomitant]
  6. LIPITOR [Concomitant]
  7. LOTENSIN [Concomitant]
  8. ALLOPURINOL [Concomitant]
  9. ZANTAC [Concomitant]
  10. LASIX [Concomitant]
  11. ZAROXOLYN [Concomitant]
  12. ASPIRIN [Concomitant]

REACTIONS (6)
  - BRADYCARDIA [None]
  - ELECTROCARDIOGRAM P WAVE ABNORMAL [None]
  - MEDICATION ERROR [None]
  - NAUSEA [None]
  - VENTRICULAR EXTRASYSTOLES [None]
  - VOMITING [None]
